FAERS Safety Report 6870904-9 (Version None)
Quarter: 2010Q3

REPORT INFORMATION
  Report Type: 
  Country: None (occurrence: None)
  Receive Date: 20100723
  Receipt Date: 20100719
  Transmission Date: 20110219
  Serious: Yes (Hospitalization)
  Sender: FDA-Public Use
  Company Number: US-ROXANE LABORATORIES, INC.-2010-RO-00863RO

PATIENT
  Age: 67 Year
  Sex: Male

DRUGS (3)
  1. LITHIUM CARBONATE [Suspect]
     Indication: BIPOLAR DISORDER
     Dates: start: 19960101
  2. BENZTROPINE MESYLATE [Suspect]
  3. NIFEDIPINE [Suspect]

REACTIONS (8)
  - ATRIAL FIBRILLATION [None]
  - BLOOD UREA INCREASED [None]
  - HYPERPARATHYROIDISM [None]
  - NEPHROGENIC DIABETES INSIPIDUS [None]
  - PSYCHOTIC DISORDER [None]
  - THERAPEUTIC AGENT TOXICITY [None]
  - THYROIDITIS [None]
  - THYROTOXIC CRISIS [None]
